FAERS Safety Report 25788124 (Version 1)
Quarter: 2025Q3

REPORT INFORMATION
  Report Type: Spontaneous
  Country: EU (occurrence: EU)
  Receive Date: 20250910
  Receipt Date: 20250910
  Transmission Date: 20251021
  Serious: Yes (Other)
  Sender: MYLAN
  Company Number: EU-GLAXOSMITHKLINE-FR2016GSK200198

PATIENT
  Age: 24 Year
  Sex: Female

DRUGS (24)
  1. PREGABALIN [Suspect]
     Active Substance: PREGABALIN
     Indication: Generalised anxiety disorder
     Dosage: 100 MG, TID, (300 MG, QD)
     Dates: start: 2012
  2. PREGABALIN [Suspect]
     Active Substance: PREGABALIN
     Dosage: 100 MG, TID, (300 MG, QD)
     Route: 048
     Dates: start: 2012
  3. PREGABALIN [Suspect]
     Active Substance: PREGABALIN
     Dosage: 100 MG, TID, (300 MG, QD)
     Route: 048
     Dates: start: 2012
  4. PREGABALIN [Suspect]
     Active Substance: PREGABALIN
     Dosage: 100 MG, TID, (300 MG, QD)
     Dates: start: 2012
  5. NICOTINE [Suspect]
     Active Substance: NICOTINE
     Indication: Product used for unknown indication
  6. NICOTINE [Suspect]
     Active Substance: NICOTINE
     Route: 005
  7. NICOTINE [Suspect]
     Active Substance: NICOTINE
     Route: 005
  8. NICOTINE [Suspect]
     Active Substance: NICOTINE
  9. ARIPIPRAZOLE [Concomitant]
     Active Substance: ARIPIPRAZOLE
     Indication: Product used for unknown indication
  10. ARIPIPRAZOLE [Concomitant]
     Active Substance: ARIPIPRAZOLE
     Route: 065
  11. ARIPIPRAZOLE [Concomitant]
     Active Substance: ARIPIPRAZOLE
     Route: 065
  12. ARIPIPRAZOLE [Concomitant]
     Active Substance: ARIPIPRAZOLE
  13. FLUOXETINE [Concomitant]
     Active Substance: FLUOXETINE HYDROCHLORIDE
     Indication: Antidepressant therapy
  14. FLUOXETINE [Concomitant]
     Active Substance: FLUOXETINE HYDROCHLORIDE
     Route: 065
  15. FLUOXETINE [Concomitant]
     Active Substance: FLUOXETINE HYDROCHLORIDE
     Route: 065
  16. FLUOXETINE [Concomitant]
     Active Substance: FLUOXETINE HYDROCHLORIDE
  17. MIRTAZAPINE [Concomitant]
     Active Substance: MIRTAZAPINE
     Indication: Antidepressant therapy
  18. MIRTAZAPINE [Concomitant]
     Active Substance: MIRTAZAPINE
     Route: 065
  19. MIRTAZAPINE [Concomitant]
     Active Substance: MIRTAZAPINE
     Route: 065
  20. MIRTAZAPINE [Concomitant]
     Active Substance: MIRTAZAPINE
  21. OXAZEPAM [Concomitant]
     Active Substance: OXAZEPAM
     Indication: Product used for unknown indication
  22. OXAZEPAM [Concomitant]
     Active Substance: OXAZEPAM
     Route: 065
  23. OXAZEPAM [Concomitant]
     Active Substance: OXAZEPAM
     Route: 065
  24. OXAZEPAM [Concomitant]
     Active Substance: OXAZEPAM

REACTIONS (21)
  - Thinking abnormal [Recovered/Resolved]
  - Impaired quality of life [Unknown]
  - Drug use disorder [Unknown]
  - Substance use [Unknown]
  - Drug interaction [Unknown]
  - Euphoric mood [Recovered/Resolved]
  - Insomnia [Unknown]
  - Tremor [Unknown]
  - Asthenia [Unknown]
  - Hyperhidrosis [Unknown]
  - Withdrawal syndrome [Recovered/Resolved]
  - Suicidal ideation [Recovered/Resolved]
  - Intentional product misuse [Unknown]
  - Drug dependence [Recovered/Resolved]
  - Drug abuse [Unknown]
  - Dependence [Unknown]
  - Drug tolerance [Recovered/Resolved]
  - Mental disorder [Recovered/Resolved]
  - Tobacco use disorder [Recovering/Resolving]
  - Anxiety [Unknown]
  - Prescription drug used without a prescription [Recovered/Resolved]
